FAERS Safety Report 13872600 (Version 1)
Quarter: 2017Q3

REPORT INFORMATION
  Report Type: Spontaneous
  Country: US (occurrence: US)
  Receive Date: 20170816
  Receipt Date: 20170816
  Transmission Date: 20171127
  Serious: No
  Sender: FDA-Public Use
  Company Number: US-LUNDBECK-DKLU2028441

PATIENT
  Age: 86 Year
  Sex: Female

DRUGS (1)
  1. NORTHERA [Suspect]
     Active Substance: DROXIDOPA
     Indication: PARKINSON^S DISEASE
     Dosage: SCHEDULE B AND TITRATING
     Route: 065
     Dates: start: 20170311, end: 20170311

REACTIONS (4)
  - Malaise [Unknown]
  - Constipation [Unknown]
  - Blood pressure increased [Unknown]
  - Memory impairment [Unknown]

NARRATIVE: CASE EVENT DATE: 201703
